FAERS Safety Report 10033485 (Version 4)
Quarter: 2014Q2

REPORT INFORMATION
  Report Type: Spontaneous
  Country: US (occurrence: US)
  Receive Date: 20140325
  Receipt Date: 20140625
  Transmission Date: 20141212
  Serious: Yes (Death, Hospitalization, Other)
  Sender: FDA-Public Use
  Company Number: US-BIOGENIDEC-2014BI027275

PATIENT
  Age: 66 Year
  Sex: Female

DRUGS (13)
  1. AVONEX [Suspect]
     Indication: PROGRESSIVE MULTIPLE SCLEROSIS
     Route: 030
     Dates: start: 20011030
  2. AVONEX [Suspect]
     Indication: PROGRESSIVE MULTIPLE SCLEROSIS
     Route: 030
     Dates: start: 20031111, end: 20040706
  3. AVONEX [Suspect]
     Indication: PROGRESSIVE MULTIPLE SCLEROSIS
     Route: 030
     Dates: start: 20041007
  4. AVONEX [Suspect]
     Indication: PROGRESSIVE MULTIPLE SCLEROSIS
     Route: 030
     Dates: start: 20130122, end: 201403
  5. ALENDRONATE SODIUM [Concomitant]
  6. ASPIRIN [Concomitant]
  7. BACLOFEN [Concomitant]
  8. CALCIUM CITRATE + [Concomitant]
  9. FOSAMAX [Concomitant]
  10. OXYCODONE HCI [Concomitant]
  11. PAROXETINE HCI [Concomitant]
  12. SIMVASTATIN [Concomitant]
  13. TUMS [Concomitant]

REACTIONS (9)
  - Urosepsis [Fatal]
  - Multi-organ failure [Fatal]
  - Cystitis [Unknown]
  - Coma [Unknown]
  - Hypoaesthesia [Recovered/Resolved]
  - Progressive multiple sclerosis [Unknown]
  - Off label use [Unknown]
  - Pyrexia [Unknown]
  - Heart rate increased [Unknown]
